FAERS Safety Report 17081030 (Version 1)
Quarter: 2019Q4

REPORT INFORMATION
  Report Type: Spontaneous
  Country: US (occurrence: US)
  Receive Date: 20191127
  Receipt Date: 20191127
  Transmission Date: 20200122
  Serious: Yes (Hospitalization)
  Sender: FDA-Public Use
  Company Number: US-VERTEX PHARMACEUTICALS-2019-011723

PATIENT
  Sex: Male

DRUGS (11)
  1. PROVENTIL [Concomitant]
     Active Substance: ALBUTEROL
  2. MEPHYTON [Concomitant]
     Active Substance: PHYTONADIONE
  3. MONTELUKAST [Concomitant]
     Active Substance: MONTELUKAST SODIUM
  4. SODIUM CHLORIDE. [Concomitant]
     Active Substance: SODIUM CHLORIDE
  5. BETHKIS [Concomitant]
     Active Substance: TOBRAMYCIN
  6. SYMDEKO [Suspect]
     Active Substance: IVACAFTOR\TEZACAFTOR
     Indication: CYSTIC FIBROSIS
     Dosage: 100MG TEZACAFTOR/150MG IVACAFTOR AM; 150MG IVACAFTOR PM
     Route: 048
     Dates: start: 201809
  7. SYMBICORT [Concomitant]
     Active Substance: BUDESONIDE\FORMOTEROL FUMARATE DIHYDRATE
  8. AZITHROMYCIN ANHYDROUS. [Concomitant]
     Active Substance: AZITHROMYCIN ANHYDROUS
  9. ZENPEP [Concomitant]
     Active Substance: PANCRELIPASE AMYLASE\PANCRELIPASE LIPASE\PANCRELIPASE PROTEASE
  10. PULMOZYME [Concomitant]
     Active Substance: DORNASE ALFA
  11. CAYSTON [Concomitant]
     Active Substance: AZTREONAM

REACTIONS (1)
  - Immune tolerance induction [Not Recovered/Not Resolved]

NARRATIVE: CASE EVENT DATE: 2019
